FAERS Safety Report 21788747 (Version 1)
Quarter: 2022Q4

REPORT INFORMATION
  Report Type: Spontaneous
  Country: US (occurrence: US)
  Receive Date: 20221228
  Receipt Date: 20221228
  Transmission Date: 20230113
  Serious: No
  Sender: FDA-Public Use
  Company Number: US-PFIZER INC-PV202200130728

PATIENT
  Age: 44 Year
  Sex: Male

DRUGS (2)
  1. EUCRISA [Suspect]
     Active Substance: CRISABOROLE
     Indication: Rash
     Dosage: UNK, 2X/DAY (APPLY TO AFFECTED AREA TWICE DAILY OR AS NEEDED ( NON STEROID))
     Route: 061
  2. HALOG [Suspect]
     Active Substance: HALCINONIDE
     Indication: Rash
     Dosage: UNK

REACTIONS (2)
  - Off label use [Unknown]
  - Condition aggravated [Not Recovered/Not Resolved]
